FAERS Safety Report 9972705 (Version 1)
Quarter: 2014Q1

REPORT INFORMATION
  Report Type: Spontaneous
  Country: US (occurrence: None)
  Receive Date: 20140127
  Receipt Date: 20140127
  Transmission Date: 20141002
  Serious: Yes (Other)
  Sender: FDA-Public Use
  Company Number: 1282944

PATIENT
  Age: 63 Year
  Sex: Female

DRUGS (7)
  1. RITUXIMAB [Suspect]
     Indication: MANTLE CELL LYMPHOMA
  2. CYCLOPHOSPHAMIDE (CYCLOPHOSPHAMIDE) [Suspect]
     Indication: MANTLE CELL LYMPHOMA
  3. VINCRISTINE [Suspect]
     Indication: MANTLE CELL LYMPHOMA
  4. ADRIAMYCIN (DOXORUBICIN) INJ. USP 10MG/5ML [Suspect]
     Indication: MANTLE CELL LYMPHOMA
  5. METHOTREXATE (METHOTREXATE) [Suspect]
     Indication: MANTLE CELL LYMPHOMA
  6. CYTARABINE (CYTARABINE) [Suspect]
     Indication: MANTLE CELL LYMPHOMA
  7. DEXAMETHASONE (DEXAMETHASONE) [Suspect]
     Indication: MANTLE CELL LYMPHOMA

REACTIONS (5)
  - Thrombocytopenia [None]
  - Pancytopenia [None]
  - Hypersensitivity [None]
  - Haemoglobin decreased [None]
  - White blood cell count decreased [None]
